FAERS Safety Report 7550268-8 (Version None)
Quarter: 2011Q2

REPORT INFORMATION
  Report Type: 
  Country: None (occurrence: None)
  Receive Date: 20110615
  Receipt Date: 20090216
  Transmission Date: 20111010
  Serious: Yes (Hospitalization, Other)
  Sender: FDA-Public Use
  Company Number: US-BAYER-200913061NA

PATIENT
  Age: 66 Year
  Sex: Male
  Weight: 65 kg

DRUGS (24)
  1. RED BLOOD CELLS [Concomitant]
     Dosage: 2 U, ONCE
     Route: 042
     Dates: start: 20031231
  2. CORDARONE [Concomitant]
     Route: 042
  3. TRASYLOL [Suspect]
     Dosage: 50 ML/HOUR INFUSION
     Route: 042
     Dates: start: 20031231, end: 20031231
  4. LIPITOR [Concomitant]
  5. SODIUM BICARBONATE [Concomitant]
     Dosage: UNK
     Route: 042
     Dates: start: 20031231
  6. VERSED [Concomitant]
     Dosage: 10MG
     Route: 042
     Dates: start: 20031231, end: 20031231
  7. ACETYLSALICYLIC ACID SRT [Concomitant]
  8. NEOSYNEPHRINE [Concomitant]
     Dosage: UNK
     Route: 042
     Dates: start: 20031231
  9. DOPAMINE HCL [Concomitant]
     Dosage: UNK
     Route: 042
     Dates: start: 20031231, end: 20031231
  10. HEPARIN [Concomitant]
     Dosage: 20,000 UNITS/30,000 UNITS
     Route: 042
     Dates: start: 20031231
  11. FENTANYL [Concomitant]
     Dosage: 30 MG
     Route: 042
     Dates: start: 20031231, end: 20031231
  12. INSULIN [Concomitant]
     Dosage: 5UNITS
     Route: 042
     Dates: start: 20031231, end: 20031231
  13. DIFLUCAN [Concomitant]
  14. TRASYLOL [Suspect]
     Indication: CORONARY ARTERY BYPASS
     Dosage: 200 ML, ONCE, LOADING DOSE
     Route: 042
     Dates: start: 20031231, end: 20031231
  15. LASIX [Concomitant]
     Dosage: UNK
     Route: 042
     Dates: start: 20031231, end: 20031231
  16. DOBUTAMINE HYDROCHLORIDE [Concomitant]
     Dosage: UNK
     Route: 042
     Dates: start: 20031231, end: 20031231
  17. NITROL [Concomitant]
  18. MILRINONE [Concomitant]
     Dosage: UNK
     Route: 042
     Dates: start: 20031231, end: 20031231
  19. VERPAMIL HCL [Concomitant]
  20. RESTORIL [Concomitant]
  21. NITROSTAT [Concomitant]
  22. CALCIUM CHLORIDE [Concomitant]
     Dosage: 2 G
     Route: 042
     Dates: start: 20031231, end: 20031231
  23. MAGNESIUM SULFATE [Concomitant]
     Dosage: 5 G
     Route: 042
     Dates: start: 20031231, end: 20031231
  24. AMIODARONE HCL [Concomitant]
     Dosage: 150 MG
     Route: 042
     Dates: start: 20031231, end: 20031231

REACTIONS (8)
  - RENAL FAILURE [None]
  - PAIN [None]
  - INJURY [None]
  - ANXIETY [None]
  - DEPRESSION [None]
  - UNEVALUABLE EVENT [None]
  - FEAR [None]
  - ANHEDONIA [None]
